FAERS Safety Report 17593095 (Version 1)
Quarter: 2020Q1

REPORT INFORMATION
  Report Type: Spontaneous
  Country: US (occurrence: US)
  Receive Date: 20200327
  Receipt Date: 20200327
  Transmission Date: 20200409
  Serious: No
  Sender: FDA-Public Use
  Company Number: US-TOPROL ACQUISITION LLC-2019-TOP-001042

PATIENT
  Age: 68 Year
  Sex: Male
  Weight: 90.7 kg

DRUGS (4)
  1. ASPIRIN. [Concomitant]
     Active Substance: ASPIRIN
     Indication: ANTIPLATELET THERAPY
     Dosage: 84MG OR 85 MG, QD
     Route: 048
     Dates: start: 20190108
  2. BRILINTA [Concomitant]
     Active Substance: TICAGRELOR
     Indication: ANTIPLATELET THERAPY
     Dosage: 90 MG, BID
     Route: 048
     Dates: start: 20190108
  3. ATORVASTATIN [Concomitant]
     Active Substance: ATORVASTATIN
     Indication: HYPERCHOLESTEROLAEMIA
     Dosage: 40 MG, QD
     Route: 048
     Dates: start: 20190108
  4. METOPROLOL SUCCINATE. [Suspect]
     Active Substance: METOPROLOL SUCCINATE
     Indication: HYPERTENSION
     Dosage: 25 MG, BID
     Route: 048
     Dates: start: 20190108

REACTIONS (1)
  - Inappropriate schedule of product administration [Unknown]

NARRATIVE: CASE EVENT DATE: 20190108
